FAERS Safety Report 5884476-9 (Version None)
Quarter: 2008Q3

REPORT INFORMATION
  Report Type: 
  Country: None (occurrence: None)
  Receive Date: 20080911
  Receipt Date: 20080828
  Transmission Date: 20090109
  Serious: Yes (Death)
  Sender: FDA-Public Use
  Company Number: 2008S1015690

PATIENT
  Sex: Male

DRUGS (5)
  1. AZATHIOPRINE [Suspect]
     Indication: MYASTHENIA GRAVIS
     Dosage: 100 MG;TWICE A DAY ORAL
     Route: 048
     Dates: end: 20070321
  2. ERLOTINIB (ERLOTINIB) [Suspect]
     Indication: NON-SMALL CELL LUNG CANCER
     Dosage: 150 MG;ORAL;DAILY
     Route: 048
     Dates: start: 20070301, end: 20070330
  3. ITRACONAZOLE [Concomitant]
  4. PYRIDOSTIGMINE (PYRIDOSTIGMINE) [Concomitant]
  5. VALPROATE SODIUM [Concomitant]

REACTIONS (5)
  - HAEMATURIA [None]
  - HAEMOGLOBIN DECREASED [None]
  - HAEMOPTYSIS [None]
  - PROTHROMBIN TIME SHORTENED [None]
  - WHITE BLOOD CELL COUNT DECREASED [None]
